FAERS Safety Report 7390270-2 (Version None)
Quarter: 2011Q2

REPORT INFORMATION
  Report Type: 
  Country: None (occurrence: None)
  Receive Date: 20110401
  Receipt Date: 20110325
  Transmission Date: 20111010
  Serious: Yes (Other)
  Sender: FDA-Public Use
  Company Number: US-ROCHE-767808

PATIENT
  Age: 42 Year
  Sex: Female

DRUGS (1)
  1. BONIVA [Suspect]
     Route: 065
     Dates: start: 20110315

REACTIONS (9)
  - THERMOANAESTHESIA [None]
  - HYPOAESTHESIA ORAL [None]
  - PAIN [None]
  - SKIN DISCOLOURATION [None]
  - GAIT DISTURBANCE [None]
  - PERIPHERAL COLDNESS [None]
  - PARAESTHESIA [None]
  - ARTHROPATHY [None]
  - HYPOAESTHESIA [None]
